FAERS Safety Report 4708990-4 (Version None)
Quarter: 2005Q3

REPORT INFORMATION
  Report Type: 
  Country: None (occurrence: None)
  Receive Date: 20050707
  Receipt Date: 20050621
  Transmission Date: 20060218
  Serious: Yes (Other)
  Sender: FDA-Public Use
  Company Number: 2005091431

PATIENT
  Age: 30 Year
  Sex: Female

DRUGS (2)
  1. ZOLOFT [Suspect]
     Indication: BIPOLAR DISORDER
     Dosage: 200 MG (200 MG, 1 IN 1 D), ORAL
     Route: 048
  2. SEROQUEL [Concomitant]

REACTIONS (2)
  - DRUG SCREEN POSITIVE [None]
  - GASTRIC BYPASS [None]
